FAERS Safety Report 5337945-4 (Version None)
Quarter: 2007Q2

REPORT INFORMATION
  Report Type: 
  Country: None (occurrence: None)
  Receive Date: 20070530
  Receipt Date: 20070521
  Transmission Date: 20071010
  Serious: Yes (Other)
  Sender: FDA-Public Use
  Company Number: US-BAYER-200710889BWH

PATIENT
  Age: 33 Year
  Sex: Male

DRUGS (5)
  1. AVELOX [Suspect]
     Indication: ACUTE SINUSITIS
     Dosage: TOTAL DAILY DOSE: 400 MG  UNIT DOSE: 400 MG
     Route: 048
     Dates: start: 20061113, end: 20061120
  2. AVELOX [Suspect]
     Dates: start: 20061001
  3. VICODIN [Concomitant]
     Indication: PAIN
  4. IBUPROFEN [Concomitant]
     Dates: start: 20070201
  5. MEDROL [Concomitant]
     Indication: NASAL POLYPS
     Dates: start: 20061113

REACTIONS (6)
  - ARTHRALGIA [None]
  - JOINT STIFFNESS [None]
  - JOINT SWELLING [None]
  - OEDEMA PERIPHERAL [None]
  - SERUM SICKNESS [None]
  - URTICARIA [None]
